FAERS Safety Report 8546107-9 (Version None)
Quarter: 2012Q3

REPORT INFORMATION
  Report Type: 
  Country: None (occurrence: None)
  Receive Date: 20120727
  Receipt Date: 20111209
  Transmission Date: 20120928
  Serious: No
  Sender: FDA-Public Use
  Company Number: US-ASTRAZENECA-2011SE74615

PATIENT
  Age: 57 Year
  Sex: Female
  Weight: 90.7 kg

DRUGS (2)
  1. ASPIRIN [Concomitant]
  2. SEROQUEL XR [Suspect]
     Indication: BIPOLAR DISORDER
     Route: 048
     Dates: start: 20100401

REACTIONS (8)
  - DRUG WITHDRAWAL SYNDROME [None]
  - TACHYPHRENIA [None]
  - FEELING ABNORMAL [None]
  - DIARRHOEA [None]
  - HEAD DISCOMFORT [None]
  - BLOOD PRESSURE INCREASED [None]
  - VOMITING [None]
  - DRUG DOSE OMISSION [None]
